FAERS Safety Report 10835864 (Version 1)
Quarter: 2015Q1

REPORT INFORMATION
  Report Type: Report from Study
  Country: US (occurrence: US)
  Receive Date: 20150219
  Receipt Date: 20150219
  Transmission Date: 20150721
  Serious: No
  Sender: FDA-Public Use
  Company Number: US-ABBVIE-14P-163-1204810-00

PATIENT
  Age: 62 Year
  Sex: Female
  Weight: 61.29 kg

DRUGS (3)
  1. HUMIRA [Suspect]
     Active Substance: ADALIMUMAB
     Indication: RHEUMATOID ARTHRITIS
     Route: 058
     Dates: start: 201212, end: 201310
  2. BENADRYL [Suspect]
     Active Substance: DIPHENHYDRAMINE HYDROCHLORIDE
     Indication: INJECTION SITE URTICARIA
     Dates: start: 201307, end: 201310
  3. SYNTHROID [Concomitant]
     Active Substance: LEVOTHYROXINE SODIUM
     Indication: HYPOTHYROIDISM

REACTIONS (5)
  - Injection site urticaria [Recovered/Resolved]
  - Injection site urticaria [Recovered/Resolved]
  - Injection site pruritus [Recovered/Resolved]
  - Injection site discolouration [Recovered/Resolved]
  - Drug ineffective [Unknown]

NARRATIVE: CASE EVENT DATE: 201307
